FAERS Safety Report 8602310 (Version 3)
Quarter: 2014Q1

REPORT INFORMATION
  Report Type: Spontaneous
  Country: US (occurrence: US)
  Receive Date: 20120607
  Receipt Date: 20140115
  Transmission Date: 20141002
  Serious: Yes (Hospitalization)
  Sender: FDA-Public Use
  Company Number: US-ASTRAZENECA-2012SE34673

PATIENT
  Age: 696 Month
  Sex: Male

DRUGS (14)
  1. NEXIUM [Suspect]
     Indication: GASTROOESOPHAGEAL REFLUX DISEASE
     Route: 048
     Dates: start: 2006, end: 2010
  2. NEXIUM [Suspect]
     Indication: GASTRIC ULCER
     Route: 048
     Dates: start: 2006, end: 2010
  3. NEXIUM [Suspect]
     Indication: GASTROOESOPHAGEAL REFLUX DISEASE
     Route: 048
     Dates: start: 20080202
  4. NEXIUM [Suspect]
     Indication: GASTRIC ULCER
     Route: 048
     Dates: start: 20080202
  5. PRILOSEC [Suspect]
     Indication: GASTROOESOPHAGEAL REFLUX DISEASE
     Route: 048
     Dates: start: 2006
  6. TUMS [Concomitant]
     Indication: DYSPEPSIA
     Dates: start: 1997
  7. ROLAIDS [Concomitant]
     Indication: DYSPEPSIA
     Dates: start: 1997
  8. DIOVAN [Concomitant]
     Indication: HYPERTENSION
  9. FUROSEMIDE [Concomitant]
     Indication: CARDIAC DISORDER
     Dates: start: 2010
  10. CARVEDILOL [Concomitant]
     Indication: HYPERTENSION
     Dates: start: 2010
  11. LISINOPRIL [Concomitant]
  12. LISINOPRIL HCTZ [Concomitant]
     Dates: start: 20080108
  13. AMLODIPIN BESYLAT [Concomitant]
     Dates: start: 20091110
  14. PREDNISONE [Concomitant]
     Dates: start: 20091215

REACTIONS (8)
  - Lung neoplasm malignant [Unknown]
  - Osteoporosis [Unknown]
  - Multiple fractures [Unknown]
  - Osteopenia [Unknown]
  - Bone disorder [Unknown]
  - Diabetes mellitus [Unknown]
  - Vitamin D deficiency [Unknown]
  - Arthropathy [Unknown]
